FAERS Safety Report 9611275 (Version 2)
Quarter: 2013Q4

REPORT INFORMATION
  Report Type: Report from Study
  Country: US (occurrence: US)
  Receive Date: 20131010
  Receipt Date: 20131011
  Transmission Date: 20140711
  Serious: Yes (Death)
  Sender: FDA-Public Use
  Company Number: US-ROCHE-1287094

PATIENT
  Sex: Male

DRUGS (2)
  1. AVASTIN [Suspect]
     Indication: RECTAL CANCER
     Route: 065
  2. AVASTIN [Suspect]
     Indication: HEPATIC CANCER

REACTIONS (1)
  - Metastatic neoplasm [Fatal]
